FAERS Safety Report 23973179 (Version 1)
Quarter: 2024Q2

REPORT INFORMATION
  Report Type: Spontaneous
  Country: CH (occurrence: CH)
  Receive Date: 20240613
  Receipt Date: 20240613
  Transmission Date: 20240716
  Serious: Yes (Other)
  Sender: FDA-Public Use
  Company Number: CH-TAKEDA-2024TUS057183

PATIENT
  Age: 25 Year
  Sex: Male
  Weight: 71.4 kg

DRUGS (13)
  1. PANTOZOL [Suspect]
     Active Substance: PANTOPRAZOLE SODIUM
     Dosage: 20 MILLIGRAM, QD
     Route: 048
     Dates: start: 20240510
  2. COLCHICINE [Suspect]
     Active Substance: COLCHICINE
     Indication: Pericarditis
     Dosage: 0.5 MILLIGRAM, BID
     Route: 048
     Dates: start: 20240410, end: 20240429
  3. ASPIRIN [Suspect]
     Active Substance: ASPIRIN
     Dosage: 500 MILLIGRAM, TID
     Route: 048
     Dates: start: 20240514
  4. CODEINE PHOSPHATE [Suspect]
     Active Substance: CODEINE PHOSPHATE
     Indication: Cough
     Dosage: 3 MILLIGRAM
     Route: 048
     Dates: start: 20240424, end: 20240429
  5. IBUPROFEN [Suspect]
     Active Substance: IBUPROFEN
     Indication: Pericarditis
     Dosage: 600 MILLIGRAM, TID
     Route: 048
     Dates: start: 20240410
  6. XYZAL [Suspect]
     Active Substance: LEVOCETIRIZINE DIHYDROCHLORIDE
     Indication: Rash
     Dosage: 5 MILLIGRAM
     Route: 048
     Dates: start: 20240414, end: 20240529
  7. CARBIMAZOLE [Suspect]
     Active Substance: CARBIMAZOLE
     Indication: Hyperthyroidism
     Dosage: 5 MILLIGRAM
     Route: 048
     Dates: start: 20240323
  8. CARBIMAZOLE [Suspect]
     Active Substance: CARBIMAZOLE
     Dosage: 5 MILLIGRAM, BID
     Route: 048
  9. CEFTRIAXONE [Suspect]
     Active Substance: CEFTRIAXONE\CEFTRIAXONE SODIUM
     Indication: Urethritis gonococcal
     Dosage: 500 MILLIGRAM
     Route: 030
     Dates: start: 20240402, end: 20240402
  10. BACTRIM [Suspect]
     Active Substance: SULFAMETHOXAZOLE\TRIMETHOPRIM
     Indication: Urethritis gonococcal
     Dosage: UNK UNK, 2X/DAY
     Route: 048
     Dates: start: 20240405, end: 20240411
  11. MONOVO [Concomitant]
     Indication: Rash
     Dosage: UNK
     Route: 003
     Dates: start: 20240414, end: 20240429
  12. OPTIDERM F [Concomitant]
     Indication: Rash
     Dosage: UNK
     Route: 003
     Dates: start: 20240414, end: 20240429
  13. ONDANSETRON [Concomitant]
     Active Substance: ONDANSETRON
     Indication: Vomiting
     Dosage: 4 MILLIGRAM
     Route: 048
     Dates: start: 20240429

REACTIONS (12)
  - Transaminases increased [Not Recovered/Not Resolved]
  - Rash [Recovered/Resolved]
  - Cough [Unknown]
  - Chest pain [Unknown]
  - Hyperhidrosis [Unknown]
  - Feeling hot [Unknown]
  - Malaise [Unknown]
  - Nausea [Unknown]
  - Vomiting [Unknown]
  - Decreased appetite [Unknown]
  - Abdominal pain [Unknown]
  - Dyspnoea [Unknown]

NARRATIVE: CASE EVENT DATE: 20240413
